FAERS Safety Report 15584567 (Version 1)
Quarter: 2018Q4

REPORT INFORMATION
  Report Type: Spontaneous
  Country: US (occurrence: US)
  Receive Date: 20181101
  Receipt Date: 20181101
  Transmission Date: 20190205
  Serious: Yes (Hospitalization)
  Sender: FDA-Public Use
  Company Number: None

PATIENT
  Age: 66 Year
  Sex: Male
  Weight: 92.62 kg

DRUGS (13)
  1. DRISDOL [Concomitant]
     Active Substance: ERGOCALCIFEROL
  2. KEPPRA [Concomitant]
     Active Substance: LEVETIRACETAM
  3. DEXAMETHASONE. [Concomitant]
     Active Substance: DEXAMETHASONE
  4. ZOFRAN [Concomitant]
     Active Substance: ONDANSETRON HYDROCHLORIDE
  5. YESCARTA [Suspect]
     Active Substance: AXICABTAGENE CILOLEUCEL
     Indication: DIFFUSE LARGE B-CELL LYMPHOMA
     Dosage: ?          OTHER DOSE:2X10^8TH CAR-T CEL;OTHER ROUTE:IV INFUSION?
     Dates: start: 20180723
  6. CYCLOPHOSPHAMIDE. [Concomitant]
     Active Substance: CYCLOPHOSPHAMIDE
  7. NOXAFIL [Concomitant]
     Active Substance: POSACONAZOLE
  8. COMPAZINE [Concomitant]
     Active Substance: PROCHLORPERAZINE MALEATE
  9. FLUDARABINE [Concomitant]
     Active Substance: FLUDARABINE PHOSPHATE
  10. FAMVIR [Concomitant]
     Active Substance: FAMCICLOVIR
  11. LEVAQUIN [Concomitant]
     Active Substance: LEVOFLOXACIN
  12. PRILOSEC [Concomitant]
     Active Substance: OMEPRAZOLE MAGNESIUM
  13. CHEMOTHERAPY PRIOR TO INFUSION OF YESCARTA [Concomitant]

REACTIONS (13)
  - Flat affect [None]
  - Anhedonia [None]
  - Memory impairment [None]
  - Depression [None]
  - Neutropenia [None]
  - Delirium [None]
  - Pancytopenia [None]
  - Toxicity to various agents [None]
  - Mental status changes [None]
  - Clostridium bacteraemia [None]
  - Refusal of treatment by patient [None]
  - Urinary retention [None]
  - Asthenia [None]

NARRATIVE: CASE EVENT DATE: 20180825
